FAERS Safety Report 7763735-9 (Version None)
Quarter: 2011Q3

REPORT INFORMATION
  Report Type: 
  Country: None (occurrence: None)
  Receive Date: 20110921
  Receipt Date: 20110913
  Transmission Date: 20111222
  Serious: Yes (Hospitalization, Other)
  Sender: FDA-Public Use
  Company Number: GB-PAR PHARMACEUTICAL, INC-2011SCPR003230

PATIENT

DRUGS (2)
  1. SERTRALINE HYDROCHLORIDE [Concomitant]
     Indication: BIPOLAR DISORDER
     Dosage: 100 MG, ONCE DAILY
     Route: 065
  2. RISPERIDONE [Suspect]
     Indication: BIPOLAR DISORDER
     Dosage: 1 MG, ONCE DAILY
     Route: 065

REACTIONS (2)
  - BENIGN INTRACRANIAL HYPERTENSION [None]
  - WEIGHT INCREASED [None]
